FAERS Safety Report 24449793 (Version 2)
Quarter: 2024Q4

REPORT INFORMATION
  Report Type: Report from Study
  Country: US (occurrence: US)
  Receive Date: 20241017
  Receipt Date: 20241105
  Transmission Date: 20250115
  Serious: Yes (Death)
  Sender: AMNEAL
  Company Number: US-AMNEAL PHARMACEUTICALS-2024-AMRX-03776

PATIENT
  Age: 81 Year
  Sex: Female

DRUGS (2)
  1. CARBIDOPA\LEVODOPA [Suspect]
     Active Substance: CARBIDOPA\LEVODOPA
     Indication: Product used for unknown indication
     Dosage: 1 CAPSULES,(23.75/95MG) 3 /DAY AT 6AM, 10:30AM, AND 4PM
     Route: 048
  2. CARBIDOPA\LEVODOPA [Suspect]
     Active Substance: CARBIDOPA\LEVODOPA
     Dosage: 4 CAPSULES,(23.75/95MG) 5 /DAY AT 7AM,11AM,3PM,7PM AND 3AM
     Route: 048
     Dates: start: 20240415

REACTIONS (1)
  - Death [Fatal]

NARRATIVE: CASE EVENT DATE: 20241013
